FAERS Safety Report 5086519-1 (Version None)
Quarter: 2006Q3

REPORT INFORMATION
  Report Type: 
  Country: None (occurrence: None)
  Receive Date: 20060823
  Receipt Date: 20060817
  Transmission Date: 20061208
  Serious: Yes (Other)
  Sender: FDA-Public Use
  Company Number: PHEH2006US10589

PATIENT
  Age: 93 Year
  Sex: Male

DRUGS (3)
  1. STALEVO 100 [Suspect]
  2. COMTAN [Suspect]
     Dates: start: 20060815
  3. SINEMET [Suspect]
     Dates: start: 20060815

REACTIONS (3)
  - MEDICATION ERROR [None]
  - MUSCLE RIGIDITY [None]
  - NAUSEA [None]
